FAERS Safety Report 18693910 (Version 1)
Quarter: 2021Q1

REPORT INFORMATION
  Report Type: Spontaneous
  Country: JP (occurrence: JP)
  Receive Date: 20210104
  Receipt Date: 20210104
  Transmission Date: 20210419
  Serious: Yes (Hospitalization)
  Sender: FDA-Public Use
  Company Number: NVSJ2020JP014505

PATIENT
  Age: 86 Year
  Sex: Female

DRUGS (5)
  1. RISPERDAL [Concomitant]
     Active Substance: RISPERIDONE
     Indication: PRODUCT USED FOR UNKNOWN INDICATION
     Dosage: 0.5 MG, BID
     Route: 048
     Dates: start: 202006
  2. ENERZAIR [Suspect]
     Active Substance: GLYCOPYRROLATE\INDACATEROL\MOMETASONE FUROATE
     Dosage: 1DF: INDACATEROL 150UG, GLYCOPYRRONIUM 50UG, MOMETASONE FUROATE 160UG
     Route: 055
     Dates: start: 20201106, end: 20201212
  3. EDIROL [Concomitant]
     Active Substance: ELDECALCITOL
     Indication: PRODUCT USED FOR UNKNOWN INDICATION
     Dosage: 0.75 UG
     Route: 048
     Dates: start: 202006
  4. ENERZAIR [Suspect]
     Active Substance: GLYCOPYRROLATE\INDACATEROL\MOMETASONE FUROATE
     Indication: ASTHMA
     Dosage: 1DF: INDACATEROL 150UG, GLYCOPYRRONIUM 50UG, MOMETASONE FUROATE 80UG
     Route: 055
     Dates: start: 20200914
  5. AMLODIPINE BESILATE [Concomitant]
     Active Substance: AMLODIPINE BESYLATE
     Indication: PRODUCT USED FOR UNKNOWN INDICATION
     Dosage: 5 MG
     Route: 048
     Dates: start: 202006

REACTIONS (1)
  - Cardiac failure [Unknown]

NARRATIVE: CASE EVENT DATE: 20201211
